FAERS Safety Report 11329810 (Version 2)
Quarter: 2015Q3

REPORT INFORMATION
  Report Type: Report from Study
  Country: CO (occurrence: CO)
  Receive Date: 20150803
  Receipt Date: 20150901
  Transmission Date: 20151125
  Serious: Yes (Hospitalization)
  Sender: FDA-Public Use
  Company Number: PHHY2015CO092537

PATIENT
  Sex: Female
  Weight: 84 kg

DRUGS (2)
  1. SIGNIFOR [Suspect]
     Active Substance: PASIREOTIDE
     Indication: CUSHING^S SYNDROME
     Dosage: 2 DF (2 AMPOULES), BID (IN THE MORNING AND IN THE AFTERNOON)
     Route: 065
     Dates: end: 201507
  2. ACETAMINOPHEN. [Concomitant]
     Active Substance: ACETAMINOPHEN
     Indication: PRODUCT USED FOR UNKNOWN INDICATION
     Route: 065

REACTIONS (5)
  - Dyspnoea [Unknown]
  - Epistaxis [Unknown]
  - Mouth haemorrhage [Unknown]
  - Thrombosis [Unknown]
  - Malaise [Unknown]
